FAERS Safety Report 5732771-6 (Version None)
Quarter: 2008Q2

REPORT INFORMATION
  Report Type: 
  Country: None (occurrence: None)
  Receive Date: 20080507
  Receipt Date: 20080507
  Transmission Date: 20081010
  Serious: Yes (Disabling)
  Sender: FDA-Public Use
  Company Number: None

PATIENT
  Sex: Female

DRUGS (1)
  1. MITOMYCIN [Suspect]
     Indication: VISION BLURRED
     Dosage: ROUTE 046
     Dates: start: 20060309

REACTIONS (1)
  - VISUAL ACUITY REDUCED [None]
